FAERS Safety Report 21798617 (Version 1)
Quarter: 2022Q4

REPORT INFORMATION
  Report Type: Spontaneous
  Country: DE (occurrence: DE)
  Receive Date: 20221230
  Receipt Date: 20221230
  Transmission Date: 20230113
  Serious: No
  Sender: FDA-Public Use
  Company Number: DE-ALKEM LABORATORIES LIMITED-DE-ALKEM-2022-10706

PATIENT
  Age: 23 Month
  Sex: Male
  Weight: .002 kg

DRUGS (1)
  1. SIROLIMUS [Suspect]
     Active Substance: SIROLIMUS
     Indication: Lymphangioma
     Dosage: UNK 0.4-0.8 MG/M2 PER DOSE TWICE DAILY
     Route: 048

REACTIONS (1)
  - Dyslipidaemia [Unknown]
